FAERS Safety Report 24064405 (Version 1)
Quarter: 2024Q3

REPORT INFORMATION
  Report Type: Spontaneous
  Country: US (occurrence: None)
  Receive Date: 20240708
  Receipt Date: 20240708
  Transmission Date: 20241017
  Serious: No
  Sender: Public
  Company Number: None

PATIENT
  Age: 17 Year
  Sex: Female
  Weight: 63.5 kg

DRUGS (1)
  1. ADBRY [Suspect]
     Active Substance: TRALOKINUMAB-LDRM
     Indication: Dermatitis atopic
     Dosage: INJECT 300MG (2 SYRINGES) SUBCUTANEOUSLY  ON DAY 1, THEN 150MG (1 SYRINGE) EVERY  2 WEEK AS DIRECTE
     Route: 058
     Dates: start: 202405

REACTIONS (2)
  - Illness [None]
  - Therapy interrupted [None]
